FAERS Safety Report 10931656 (Version 7)
Quarter: 2018Q3

REPORT INFORMATION
  Report Type: Spontaneous
  Country: KR (occurrence: KR)
  Receive Date: 20150319
  Receipt Date: 20180906
  Transmission Date: 20181010
  Serious: Yes (Other)
  Sender: FDA-Public Use
  Company Number: KR-009507513-1503KOR008290

PATIENT
  Age: 62 Year
  Sex: Male
  Weight: 71 kg

DRUGS (16)
  1. BRIDION [Suspect]
     Active Substance: SUGAMMADEX
     Indication: NEUROMUSCULAR BLOCKADE REVERSAL
     Dosage: 142 MG (2 MG/KG), ONCE
     Route: 042
     Dates: start: 20150209, end: 20150209
  2. ALOXI [Concomitant]
     Active Substance: PALONOSETRON HYDROCHLORIDE
     Indication: PROPHYLAXIS OF NAUSEA AND VOMITING
     Dosage: 75 MICROGRAM, QD
     Route: 041
     Dates: start: 20150209, end: 20150211
  3. VENTOLIN [Concomitant]
     Active Substance: ALBUTEROL SULFATE
     Indication: PROPHYLAXIS
     Dosage: 1 DF, QID
     Route: 055
     Dates: start: 20150207, end: 20150212
  4. DULCOLAX NOS [Concomitant]
     Active Substance: BISACODYL OR DOCUSATE SODIUM
     Indication: COLONIC LAVAGE
     Dosage: 20 MG, ONCE
     Route: 054
     Dates: start: 20150208, end: 20150208
  5. DENOGAN [Concomitant]
     Active Substance: PROPACETAMOL HYDROCHLORIDE
     Indication: PAIN PROPHYLAXIS
     Dosage: 2 G, ONCE
     Route: 008
     Dates: start: 20150209, end: 20150209
  6. LIDOCAINE HYDROCHLORIDE. [Concomitant]
     Active Substance: LIDOCAINE HYDROCHLORIDE
     Indication: VENTRICULAR EXTRASYSTOLES
  7. ROCURONIUM BROMIDE. [Suspect]
     Active Substance: ROCURONIUM BROMIDE
     Indication: MUSCLE RELAXANT THERAPY
     Dosage: 50 MG, ONCE
     Route: 042
     Dates: start: 20150209, end: 20150209
  8. NASEA [Concomitant]
     Active Substance: RAMOSETRON HYDROCHLORIDE
     Indication: PROPHYLAXIS OF NAUSEA AND VOMITING
     Dosage: 0.3 MG, QD
     Route: 042
     Dates: start: 20150209
  9. FENTANYL CITRATE. [Concomitant]
     Active Substance: FENTANYL CITRATE
     Dosage: 1000 MCG, QD, CONTINUOUS INFUSION
     Route: 041
     Dates: start: 20150209, end: 20150211
  10. DENOGAN [Concomitant]
     Active Substance: PROPACETAMOL HYDROCHLORIDE
     Dosage: 8 G, QD, CONTINUOS INFUSION
     Route: 041
     Dates: start: 20150209, end: 20150211
  11. HEXAMEDIN [Concomitant]
     Indication: PROPHYLAXIS
     Dosage: 1 DF, QD
     Route: 049
     Dates: start: 20150207, end: 20150208
  12. ZENOCEF (CEFAZEDONE SODIUM) [Concomitant]
     Indication: INFECTION PROPHYLAXIS
     Dosage: 1 G, BID
     Route: 042
     Dates: start: 20150209, end: 20150209
  13. HALCION [Concomitant]
     Active Substance: TRIAZOLAM
     Indication: PROPHYLAXIS
     Dosage: 0.25 MG, ONCE
     Route: 048
     Dates: start: 20150209, end: 20150209
  14. AVENTRO [Concomitant]
     Indication: PROPHYLAXIS
     Dosage: 1 DF, QID
     Route: 055
     Dates: start: 20150207, end: 20150212
  15. ROCURONIUM BROMIDE. [Suspect]
     Active Substance: ROCURONIUM BROMIDE
     Dosage: 35 MG, ONCE
     Route: 041
     Dates: start: 20150209, end: 20150209
  16. FENTANYL CITRATE. [Concomitant]
     Active Substance: FENTANYL CITRATE
     Indication: PAIN PROPHYLAXIS
     Dosage: 100 MICROGRAM, ONCE
     Route: 008
     Dates: start: 20150209, end: 20150209

REACTIONS (1)
  - Hypertensive crisis [Recovered/Resolved]

NARRATIVE: CASE EVENT DATE: 20150209
